FAERS Safety Report 16060268 (Version 1)
Quarter: 2019Q1

REPORT INFORMATION
  Report Type: Spontaneous
  Country: US (occurrence: US)
  Receive Date: 20190211
  Receipt Date: 20190211
  Transmission Date: 20190418
  Serious: No
  Sender: FDA-Public Use
  Company Number: None

PATIENT
  Age: 75 Year
  Sex: Male

DRUGS (1)
  1. WARFARIN [Suspect]
     Active Substance: WARFARIN
     Indication: ANTIPHOSPHOLIPID SYNDROME
     Route: 048
     Dates: start: 20111021, end: 20190210

REACTIONS (12)
  - International normalised ratio abnormal [None]
  - Vomiting [None]
  - Gastric haemorrhage [None]
  - Peptic ulcer [None]
  - Diarrhoea [None]
  - Duodenitis [None]
  - Mallory-Weiss syndrome [None]
  - Anticoagulation drug level below therapeutic [None]
  - Upper gastrointestinal haemorrhage [None]
  - Constipation [None]
  - Gastritis [None]
  - Coagulopathy [None]

NARRATIVE: CASE EVENT DATE: 20190210
